FAERS Safety Report 4587650-7 (Version None)
Quarter: 2005Q1

REPORT INFORMATION
  Report Type: 
  Country: None (occurrence: None)
  Receive Date: 20050211
  Receipt Date: 20050126
  Transmission Date: 20050727
  Serious: Yes (Other)
  Sender: FDA-Public Use
  Company Number: B0369272A

PATIENT
  Age: 47 Year
  Sex: Male

DRUGS (4)
  1. ALKERAN [Suspect]
     Indication: NEPHROBLASTOMA
     Dosage: 60 MG/M2
     Dates: start: 20030501
  2. CARBOPLATIN [Suspect]
     Indication: NEPHROBLASTOMA
     Dates: start: 20030501
  3. ETOPOSIDE [Suspect]
     Indication: NEPHROBLASTOMA
     Dosage: 200 MG/M2
     Dates: start: 20030501
  4. STEM CELL TRANSPLANT [Concomitant]

REACTIONS (4)
  - FEBRILE NEUTROPENIA [None]
  - HYPERBILIRUBINAEMIA [None]
  - MUCOSAL INFLAMMATION [None]
  - RENAL FAILURE ACUTE [None]
